FAERS Safety Report 7726057-8 (Version None)
Quarter: 2011Q3

REPORT INFORMATION
  Report Type: 
  Country: None (occurrence: None)
  Receive Date: 20110902
  Receipt Date: 20110831
  Transmission Date: 20111222
  Serious: Yes (Hospitalization, Other)
  Sender: FDA-Public Use
  Company Number: US-AMGEN-USACT2011038372

PATIENT
  Age: 67 Year
  Sex: Male
  Weight: 82.7 kg

DRUGS (179)
  1. VINCRISTINE [Concomitant]
     Dosage: UNK UNK, UNK
     Dates: start: 20110609
  2. CEFEPIME [Concomitant]
     Indication: INFECTION
     Dosage: 2 G, UNK
     Route: 042
     Dates: start: 20110707, end: 20110707
  3. METHYLPREDNISOLONE [Concomitant]
     Dosage: 50 MG, UNK
     Route: 042
     Dates: start: 20110707, end: 20110709
  4. TRAMADOL HYDROCHLORIDE [Concomitant]
     Indication: PAIN
     Dosage: 50 MG, UNK
     Route: 048
     Dates: start: 20110511, end: 20110517
  5. LOMOTIL [Concomitant]
     Route: 048
     Dates: start: 20110707, end: 20110712
  6. LOMOTIL [Concomitant]
     Route: 048
     Dates: start: 20110726, end: 20110727
  7. NEULASTA [Concomitant]
     Route: 058
     Dates: start: 20110712, end: 20110714
  8. POTASSIUM PHOSPHATES [Concomitant]
     Indication: SUPPLEMENTATION THERAPY
     Dosage: UNK
     Route: 042
     Dates: start: 20110606, end: 20110606
  9. KLOR-CON [Concomitant]
     Indication: ELECTROLYTE SUBSTITUTION THERAPY
     Dosage: UNK MEQ, UNK
     Route: 048
     Dates: start: 20110511, end: 20110614
  10. KLOR-CON [Concomitant]
     Route: 048
     Dates: start: 20110712, end: 20110712
  11. DEXTROSE WATER [Concomitant]
     Dosage: 1000 ML
     Route: 042
     Dates: start: 20110517, end: 20110614
  12. MICAFUNGIN [Concomitant]
     Route: 048
     Dates: start: 20110531, end: 20110607
  13. PANTOPRAZOLE [Concomitant]
     Dosage: 40 MG, UNK
     Route: 048
     Dates: start: 20110519, end: 20110521
  14. CIPROFLOXACIN [Concomitant]
     Dosage: 250 MG
     Route: 048
     Dates: start: 20110531, end: 20110607
  15. PRILOSEC [Concomitant]
     Indication: GASTROOESOPHAGEAL REFLUX DISEASE
     Dosage: 40 MG, UNK
     Route: 048
     Dates: start: 20110531, end: 20110607
  16. REGLAN [Concomitant]
     Indication: NAUSEA
     Dosage: 10 MG
     Route: 042
     Dates: start: 20110625, end: 20110625
  17. FLURDARABINE [Concomitant]
     Dates: start: 20110517, end: 20110609
  18. MEPINIDINE [Concomitant]
     Route: 042
     Dates: start: 20110707
  19. SENNOSIDES-DOCUSATE SODIUM [Concomitant]
     Indication: CONSTIPATION
     Route: 048
     Dates: start: 20110707
  20. BACTRIUM DOUBLE STRENGTH [Concomitant]
     Route: 048
     Dates: start: 20110608, end: 20110711
  21. POTASSIUM CHLORIDE [Concomitant]
     Route: 042
     Dates: start: 20110722, end: 20110722
  22. ALLOPURINOL [Concomitant]
     Route: 048
     Dates: start: 20110509, end: 20110521
  23. DEXTROMETHORPHON GRAIFENESIN [Concomitant]
     Route: 048
     Dates: start: 20110508, end: 20110607
  24. DEXTROSE 5% [Concomitant]
     Route: 042
     Dates: start: 20110608, end: 20110614
  25. HYDRALOZINE [Concomitant]
     Indication: HYPERTENSION
     Route: 042
     Dates: start: 20110508, end: 20110512
  26. TEMAZEPAN [Concomitant]
     Route: 048
     Dates: start: 20110604, end: 20110607
  27. METHOTREXATE [Concomitant]
     Dosage: UNK
     Dates: start: 20110712
  28. BLOOD CELLS, PACKED HUMAN [Concomitant]
     Indication: ANAEMIA
     Dosage: UNK
     Route: 042
     Dates: start: 20110613
  29. GUAIFENESIN [Concomitant]
     Indication: COUGH
     Dosage: 5 ML, UNK
     Route: 048
     Dates: start: 20110712
  30. ALLOPURINOL [Concomitant]
     Dosage: 300 MG
     Route: 048
     Dates: start: 20110712, end: 20110717
  31. FLAGYL [Concomitant]
     Route: 048
     Dates: start: 20110726
  32. NORVASC [Concomitant]
     Route: 048
     Dates: start: 20110725, end: 20110725
  33. HYTRIN [Concomitant]
  34. SODIUM CHLORIDE [Concomitant]
     Route: 042
     Dates: start: 20110603, end: 20110604
  35. RED BLOOD CELLS [Concomitant]
     Route: 042
     Dates: start: 20110606, end: 20110606
  36. PROCHLORPERAZINE [Concomitant]
     Indication: NAUSEA
     Route: 048
     Dates: start: 20110712
  37. ZITHROMAX [Concomitant]
     Indication: OROPHARYNGEAL PAIN
     Route: 048
     Dates: start: 20110713, end: 20110717
  38. POSTASSIUM CHLORIDE [Concomitant]
     Indication: HYPOKALAEMIA
     Route: 042
     Dates: start: 20110725, end: 20110725
  39. ONDANSETRON [Concomitant]
     Indication: NAUSEA
     Route: 042
     Dates: start: 20110725, end: 20110725
  40. MEPERIDINE HCL [Concomitant]
     Route: 042
     Dates: start: 20110609, end: 20110614
  41. AMLODYSINE [Concomitant]
     Indication: HYPERTENSION
     Route: 048
     Dates: start: 20110509, end: 20110521
  42. DEPHENHYDROMINE [Concomitant]
     Route: 042
     Dates: start: 20110508, end: 20110607
  43. POTASSIUM SODIUM PHOSPHATE [Concomitant]
     Route: 048
     Dates: start: 20110508, end: 20110508
  44. DIPHENOXYLATE HCL + ATROPINE SULFATE [Concomitant]
     Indication: DIARRHOEA
     Route: 048
     Dates: start: 20110609, end: 20110614
  45. CYTARABINE [Concomitant]
     Dosage: UNK UNK, UNK
     Dates: start: 20110517, end: 20110609
  46. DIPHENHYDRAMINE HCL [Concomitant]
     Indication: PYREXIA
     Dosage: 25 MG
     Route: 042
     Dates: start: 20110508
  47. SODIUM BICARBONATE [Concomitant]
     Route: 048
     Dates: start: 20110707, end: 20110711
  48. MEGACE [Concomitant]
  49. LACTOSE [Concomitant]
     Indication: CONSTIPATION
     Dosage: 30 MG
     Route: 048
     Dates: start: 20110601, end: 20110601
  50. NORVASC [Concomitant]
     Indication: HYPERTENSION
     Dosage: 5 MG, UNK
     Route: 048
     Dates: start: 20110509, end: 20110725
  51. MICAFUNGIN [Concomitant]
     Route: 042
     Dates: start: 20110616
  52. POTASSIUM CHLORIDE [Concomitant]
     Indication: SUPPLEMENTATION THERAPY
     Route: 048
     Dates: start: 20110518, end: 20110518
  53. AVELOX [Concomitant]
     Dosage: 400 MG
     Route: 048
     Dates: start: 20110609, end: 20110614
  54. RESTORIL [Concomitant]
     Dosage: 15 MG, UNK
     Route: 048
     Dates: start: 20110621
  55. ROCEPHIN [Concomitant]
     Indication: INFECTION
     Dosage: 2 G
     Route: 042
     Dates: start: 20110625, end: 20110625
  56. RITUXIMAB [Concomitant]
     Dates: start: 20110609, end: 20110711
  57. RED BLOOD CELLS [Concomitant]
     Route: 042
     Dates: start: 20110725, end: 20110725
  58. OTC GENERIC STOOL SOFTENER (UNK) [Concomitant]
     Indication: CONSTIPATION
     Route: 048
     Dates: start: 20110615, end: 20110530
  59. SENOSIDES-DOCUSATE SODIUM [Concomitant]
     Indication: CONSTIPATION
     Route: 048
     Dates: start: 20110513
  60. POTASSIUM CHLORIDE [Concomitant]
     Indication: ELECTROLYTE SUBSTITUTION THERAPY
     Route: 042
     Dates: start: 20110718, end: 20110718
  61. ONDANSETRON [Concomitant]
     Route: 042
     Dates: start: 20110726
  62. FILGRASTIM [Concomitant]
     Route: 058
     Dates: start: 20110726, end: 20110728
  63. ALLOPURINOL [Concomitant]
     Route: 048
     Dates: start: 20110609, end: 20110614
  64. ACETOMENIPHINE [Concomitant]
     Indication: PAIN
     Route: 048
     Dates: start: 20110608
  65. NEULOSTA [Concomitant]
     Indication: FEBRILE NEUTROPENIA
     Route: 058
     Dates: start: 20110614, end: 20110614
  66. MILK/MOLASSES ENEMA [Concomitant]
     Indication: CONSTIPATION
     Route: 054
     Dates: start: 20110625, end: 20110625
  67. CYCLOPHOSPHAMIDE [Concomitant]
     Dosage: UNK UNK, UNK
     Dates: start: 20110609
  68. FLUDARABINE PHOSPHATE [Concomitant]
     Dosage: UNK UNK, UNK
     Dates: start: 20110517, end: 20110609
  69. LASIX [Concomitant]
     Indication: FLUID OVERLOAD
     Dosage: UNK UNK, UNK
     Dates: start: 20110601, end: 20110725
  70. DIPHENHYDRAMINE HCL [Concomitant]
     Route: 042
     Dates: start: 20110619, end: 20110619
  71. HYDROCORTISONE [Concomitant]
     Dosage: 25 MG
     Route: 042
     Dates: start: 20110531, end: 20110712
  72. LOMOTIL [Concomitant]
     Indication: DIARRHOEA
     Dosage: 205 MG, UNK
     Route: 048
     Dates: start: 20110508, end: 20110607
  73. BACTRIUM DS [Concomitant]
     Indication: INFECTION
     Dosage: UNK
     Route: 048
     Dates: start: 20110604
  74. LEVALBUTEROL HCL [Concomitant]
     Indication: DYSPNOEA
     Dosage: 0.63 MG, UNK
     Route: 050
     Dates: start: 20110725
  75. PROMETHAZINE [Concomitant]
     Route: 042
     Dates: start: 20110609, end: 20110614
  76. MAGNESIUM CITRATE [Concomitant]
     Indication: CONSTIPATION
     Dosage: UNK
     Route: 048
     Dates: start: 20110625, end: 20110625
  77. DEXAMETHASONE [Concomitant]
     Dates: start: 20110609, end: 20110711
  78. RED BLOOD CELLS [Concomitant]
     Indication: HAEMOGLOBIN DECREASED
     Route: 042
     Dates: start: 20110718, end: 20110718
  79. ONDANSETRON [Concomitant]
     Route: 042
     Dates: start: 20110531, end: 20110607
  80. MEPERIDINE HCL [Concomitant]
     Indication: CHILLS
     Route: 042
     Dates: start: 20110531, end: 20110607
  81. SODIUM BICARBONATE MOUTH WASH [Concomitant]
     Indication: DENTAL DISORDER PROPHYLAXIS
     Route: 048
     Dates: start: 20110531, end: 20110607
  82. HYDROCRTISONE [Concomitant]
     Route: 042
     Dates: start: 20110531, end: 20110607
  83. PANTOPRAZOLE [Concomitant]
     Route: 048
     Dates: start: 20110519, end: 20110521
  84. NEULOSTA [Concomitant]
     Route: 058
     Dates: start: 20110617, end: 20110617
  85. PRBC [Concomitant]
     Indication: ANAEMIA
     Route: 042
     Dates: start: 20110621, end: 20110621
  86. DEXAMETHASONE [Concomitant]
     Dosage: UNK UNK, UNK
     Dates: start: 20110609
  87. RITUXAN [Concomitant]
     Dosage: UNK
     Dates: start: 20110517
  88. OXALIPLATIN [Concomitant]
     Dosage: UNK UNK, UNK
     Dates: start: 20110517, end: 20110609
  89. METOPROLOL [Concomitant]
     Indication: HYPERTENSION
     Dosage: UNK
     Route: 048
     Dates: start: 20110531, end: 20110625
  90. SODIUM CHLORIDE [Concomitant]
     Indication: RENAL FAILURE
     Route: 042
     Dates: start: 20110625, end: 20110625
  91. MAALOX PLUS [Concomitant]
     Route: 048
     Dates: start: 20110726
  92. SENNOSIDE [Concomitant]
     Indication: CONSTIPATION
     Dosage: UNK
     Route: 048
     Dates: start: 20110707
  93. LEUCOVORIN CALCIUM [Concomitant]
     Dosage: 15 MG, UNK
     Route: 042
     Dates: start: 20110710, end: 20110712
  94. NEULASTA [Concomitant]
     Indication: FEBRILE NEUTROPENIA
     Dosage: 6 MG
     Route: 058
     Dates: start: 20110523, end: 20110523
  95. COMPAZINE [Concomitant]
     Indication: NAUSEA
     Dosage: 10 MG
     Route: 048
     Dates: start: 20110608
  96. ALLOPURINOL [Concomitant]
     Route: 048
     Dates: start: 20110725, end: 20110728
  97. KLOR-CON [Concomitant]
     Route: 048
     Dates: start: 20110614, end: 20110614
  98. HYDRALAZINE HCL [Concomitant]
     Indication: HYPERTENSION
     Dosage: 10 ML, UNK
     Route: 042
     Dates: start: 20110508, end: 20110607
  99. MIDAZOLAM HCL [Concomitant]
     Indication: ANXIETY
     Dosage: 2 MG
     Route: 048
     Dates: start: 20110517, end: 20110517
  100. CIPROFLOXACIN [Concomitant]
     Route: 048
     Dates: start: 20110615
  101. COLACE [Concomitant]
     Indication: CONSTIPATION
     Dosage: 100 MG, UNK
     Route: 048
     Dates: start: 20110530, end: 20110712
  102. SODIUM CHLORIDE [Concomitant]
     Route: 042
     Dates: start: 20110601, end: 20110602
  103. RED BLOOD CELLS [Concomitant]
     Route: 042
     Dates: start: 20110722, end: 20110722
  104. ACETAMINOPHEN [Concomitant]
     Route: 042
     Dates: start: 20110531, end: 20110607
  105. GUAIFENESIN SYRINGE [Concomitant]
     Indication: COUGH
     Route: 048
     Dates: start: 20110712
  106. BACTRIUM DOUBLE STRENGTH [Concomitant]
     Indication: INFECTION
     Route: 048
     Dates: start: 20110712
  107. BACTRIUM DOUBLE STRENGTH [Concomitant]
     Route: 048
     Dates: start: 20110604, end: 20110607
  108. METOPROLO [Concomitant]
     Indication: HYPERTENSION
     Route: 048
     Dates: start: 20110531, end: 20110603
  109. SODIUM BICARBONATE [Concomitant]
     Indication: DENTAL DISORDER PROPHYLAXIS
     Dosage: 650 MG, UNK
     Route: 048
     Dates: start: 20110531, end: 20110711
  110. DEMEROL [Concomitant]
     Indication: PAIN
     Dosage: 25 MG
     Route: 042
     Dates: start: 20110519, end: 20110519
  111. HYDROCORTISONE [Concomitant]
     Route: 042
     Dates: start: 20110707, end: 20110712
  112. MEGACE [Concomitant]
     Indication: DECREASED APPETITE
     Dosage: 400 MG
     Route: 048
     Dates: start: 20110707
  113. TRAMADOL HYDROCHLORIDE [Concomitant]
     Route: 048
     Dates: start: 20110707, end: 20110712
  114. SODIUM ACETATE [Concomitant]
     Dosage: 75 MEQ, UNK
     Route: 042
     Dates: start: 20110707, end: 20110712
  115. PROMETHAZINE [Concomitant]
     Indication: NAUSEA
     Dosage: 12.5 MG
     Route: 042
     Dates: start: 20110531, end: 20110614
  116. HYDRALAZINE HCL [Concomitant]
     Route: 042
     Dates: start: 20110603, end: 20110607
  117. DEXTROMETHORPHAN W/GUAIFENESIN [Concomitant]
     Dosage: 10 MG
     Route: 048
     Dates: start: 20110508, end: 20110607
  118. MAGNESIUM SULFATE [Concomitant]
     Indication: SUPPLEMENTATION THERAPY
     Dosage: 8 MEQ, UNK
     Route: 042
     Dates: start: 20110511, end: 20110607
  119. MICAFUNGIN [Concomitant]
     Route: 042
     Dates: start: 20110609, end: 20110614
  120. SODIUM CHLORIDE [Concomitant]
     Route: 042
     Dates: start: 20110531, end: 20110531
  121. RED BLOOD CELLS [Concomitant]
     Indication: ANAEMIA
     Route: 042
     Dates: start: 20110629, end: 20110629
  122. ACETAMINOPHEN [Concomitant]
     Route: 048
     Dates: start: 20110707
  123. METHYPREDNISOLONE [Concomitant]
     Route: 042
     Dates: start: 20110707, end: 20110709
  124. ZOSYN [Concomitant]
     Indication: COLITIS
     Route: 042
     Dates: start: 20110726
  125. PROMETAZINE [Concomitant]
     Route: 042
     Dates: start: 20110531, end: 20110607
  126. THAMODOL [Concomitant]
     Route: 048
     Dates: start: 20110609, end: 20110614
  127. DENOSUMAB [Suspect]
     Indication: HYPERCALCAEMIA OF MALIGNANCY
  128. ZOMETA [Concomitant]
     Indication: HYPERCALCAEMIA OF MALIGNANCY
     Dosage: 3.2 MG
     Route: 042
     Dates: start: 20110514, end: 20110514
  129. DOXORUBICIN HCL [Concomitant]
     Dosage: UNK UNK, UNK
     Dates: start: 20110609
  130. LASIX [Concomitant]
     Indication: FLUID RETENTION
  131. PLATELETS [Concomitant]
     Indication: THROMBOCYTOPENIA
     Dosage: 6 UNK, UNK
     Route: 042
     Dates: start: 20110531, end: 20110623
  132. DIPHENHYDRAMINE HCL [Concomitant]
     Route: 042
     Dates: start: 20110531, end: 20110531
  133. DIPHENHYDRAMINE HCL [Concomitant]
     Route: 048
     Dates: start: 20110725
  134. CEFEPIME [Concomitant]
     Route: 042
     Dates: start: 20110708, end: 20110710
  135. ACETALOZAMIDE [Concomitant]
     Dosage: 250 MG, UNK
     Route: 048
     Dates: start: 20110707, end: 20110711
  136. ACETAMINOPHEN [Concomitant]
     Indication: PYREXIA
     Dosage: 650 MG
     Route: 048
     Dates: start: 20110507, end: 20110519
  137. TRAMADOL HYDROCHLORIDE [Concomitant]
     Route: 048
     Dates: start: 20110531, end: 20110607
  138. ZITHROMAX [Concomitant]
     Indication: OROPHARYNGEAL PAIN
     Dosage: 500 MG
     Route: 048
     Dates: start: 20110713, end: 20110717
  139. LACTULOSE [Concomitant]
     Indication: CONSTIPATION
     Dosage: 15 ML
     Route: 048
     Dates: start: 20110604
  140. ACYCLOVIR [Concomitant]
     Indication: ANTIVIRAL PROPHYLAXIS
     Dosage: 400 MG
     Route: 048
     Dates: start: 20100719
  141. MICAFUNGIN [Concomitant]
     Indication: FUNGAL INFECTION
     Dosage: 100 MG, UNK
     Route: 042
     Dates: start: 20110520, end: 20110607
  142. TEMAZEPAM [Concomitant]
     Dosage: 15 MG
     Route: 048
     Dates: start: 20110604, end: 20110614
  143. PEPCID [Concomitant]
     Indication: REFLUX GASTRITIS
     Dosage: 20 MG, UNK
     Route: 048
     Dates: start: 20110508, end: 20110519
  144. HYTRIN [Concomitant]
     Indication: BENIGN PROSTATIC HYPERPLASIA
     Dosage: 10 MG, UNK
     Route: 048
     Dates: start: 20110508
  145. ZOFRAN [Concomitant]
     Indication: NAUSEA
     Dosage: 8 MG, UNK
     Dates: start: 20110507
  146. COLACE [Concomitant]
     Route: 048
     Dates: start: 20110707, end: 20110712
  147. METAPROLOL [Concomitant]
     Indication: HYPERTENSION
     Route: 048
     Dates: start: 20110629
  148. POTASSIUM CHLORIDE [Concomitant]
     Route: 042
     Dates: start: 20110511, end: 20110607
  149. ATROVENT [Concomitant]
     Route: 050
     Dates: start: 20110725, end: 20110725
  150. DEXTROSE 5% [Concomitant]
     Route: 042
     Dates: start: 20110517, end: 20110521
  151. TEMAZEPAN [Concomitant]
     Route: 048
     Dates: start: 20110609, end: 20110614
  152. OUDANSETRON [Concomitant]
     Indication: NAUSEA
     Route: 042
     Dates: start: 20110609, end: 20110613
  153. DIPHEAHYDRAMINE [Concomitant]
     Route: 042
     Dates: start: 20110620
  154. ACETOMENIPHEN [Concomitant]
     Route: 048
     Dates: start: 20110621
  155. DIPHENHYDRAMINE HCL [Concomitant]
     Route: 042
     Dates: start: 20110707
  156. CEFEPIME [Concomitant]
     Route: 042
     Dates: start: 20110711, end: 20110712
  157. PREDNISOLONE [Concomitant]
     Dosage: UNK
     Route: 047
     Dates: start: 20110707, end: 20110713
  158. ACETAMINOPHEN [Concomitant]
  159. MAALOX PLUS [Concomitant]
     Indication: DYSPEPSIA
     Dosage: 15 UNK, UNK
     Route: 048
     Dates: start: 20110707, end: 20110712
  160. MAALOX PLUS [Concomitant]
     Route: 048
     Dates: start: 20110609, end: 20110614
  161. FLAGYL [Concomitant]
     Dosage: 500 MG
     Route: 048
     Dates: start: 20110713
  162. POTASSIUM PHOSPHATES [Concomitant]
     Route: 042
     Dates: start: 20110722, end: 20110722
  163. POTASSIUM PHOSPHATES [Concomitant]
     Route: 042
     Dates: start: 20110726, end: 20110726
  164. PROMETHAZINE [Concomitant]
     Route: 042
     Dates: start: 20110726
  165. PEPCID [Concomitant]
     Route: 048
     Dates: start: 20110608
  166. ZOFRAN [Concomitant]
     Route: 048
     Dates: start: 20110608, end: 20110628
  167. METAPROLOL [Concomitant]
     Route: 042
     Dates: start: 20110614, end: 20110614
  168. PREDNISOLONE TAB [Concomitant]
     Route: 047
     Dates: start: 20110707, end: 20110713
  169. POTASSIUM CHLORIDE [Concomitant]
     Indication: HYPOKALAEMIA
     Route: 042
     Dates: start: 20110713, end: 20110713
  170. POTASSIUM CHLORIDE [Concomitant]
     Route: 050
     Dates: start: 20110614, end: 20110614
  171. MEALOX PLUS [Concomitant]
     Route: 048
     Dates: start: 20110508, end: 20110607
  172. VANCOMYCIN [Concomitant]
     Route: 048
     Dates: start: 20110726
  173. ONDAUSETRON [Concomitant]
     Indication: NAUSEA
     Route: 042
     Dates: start: 20110507, end: 20110607
  174. POTTASIUM CHLORIDE [Concomitant]
     Indication: HYPOKALAEMIA
     Route: 042
     Dates: start: 20110606, end: 20110606
  175. POTTASIUM CHLORIDE [Concomitant]
     Route: 050
     Dates: start: 20110613, end: 20110613
  176. SODIUM CHLORIDE (SALINE) [Concomitant]
     Route: 042
     Dates: start: 20110605, end: 20110607
  177. COMPOZINE [Concomitant]
     Indication: NAUSEA
     Route: 048
     Dates: start: 20110608, end: 20110706
  178. RED BLOOD CELLS [Concomitant]
     Route: 042
     Dates: start: 20110613, end: 20110613
  179. DEXTHROMETHORPHAN-GUAFENESIN [Concomitant]
     Indication: COUGH
     Route: 048
     Dates: start: 20110609, end: 20110711

REACTIONS (3)
  - DYSPNOEA [None]
  - COLITIS [None]
  - FAILURE TO THRIVE [None]
